FAERS Safety Report 20753213 (Version 1)
Quarter: 2022Q2

REPORT INFORMATION
  Report Type: Spontaneous
  Country: US (occurrence: None)
  Receive Date: 20220426
  Receipt Date: 20220426
  Transmission Date: 20220721
  Serious: No
  Sender: FDA-Public Use
  Company Number: US-ROCHE-2801787

PATIENT
  Sex: Female

DRUGS (1)
  1. ESBRIET [Suspect]
     Active Substance: PIRFENIDONE
     Indication: Idiopathic pulmonary fibrosis
     Dosage: YES
     Route: 048
     Dates: start: 20210311

REACTIONS (3)
  - Abdominal discomfort [Unknown]
  - Ill-defined disorder [Unknown]
  - Pain [Unknown]

NARRATIVE: CASE EVENT DATE: 20210327
